FAERS Safety Report 4902382-0 (Version None)
Quarter: 2006Q1

REPORT INFORMATION
  Report Type: 
  Country: None (occurrence: None)
  Receive Date: 20060207
  Receipt Date: 20060125
  Transmission Date: 20060701
  Serious: Yes (Other)
  Sender: FDA-Public Use
  Company Number: 2006AC00200

PATIENT
  Age: 80 Year
  Sex: Female

DRUGS (1)
  1. TAMOXIFENO [Suspect]
     Indication: BREAST CANCER
     Route: 048

REACTIONS (3)
  - BACK PAIN [None]
  - BLOOD ALKALINE PHOSPHATASE INCREASED [None]
  - DISEASE PROGRESSION [None]
